FAERS Safety Report 10192219 (Version 1)
Quarter: 2014Q2

REPORT INFORMATION
  Report Type: Spontaneous
  Country: US (occurrence: US)
  Receive Date: 20140523
  Receipt Date: 20140523
  Transmission Date: 20141212
  Serious: No
  Sender: FDA-Public Use
  Company Number: US-AMARIN PHARMA, INC.-2014AMR000024

PATIENT
  Sex: Female
  Weight: 94.89 kg

DRUGS (4)
  1. VASCEPA [Suspect]
     Indication: BLOOD TRIGLYCERIDES
     Route: 048
  2. PRAVASTATIN [Concomitant]
     Indication: BLOOD CHOLESTEROL
     Route: 048
  3. JANUMET [Concomitant]
     Indication: DIABETES MELLITUS
     Dosage: 50/100 MG TWICE DAILY
     Route: 048
  4. METOPROLOL [Concomitant]
     Indication: TACHYCARDIA
     Route: 048

REACTIONS (1)
  - Medication residue present [Unknown]
